FAERS Safety Report 16472454 (Version 1)
Quarter: 2019Q2

REPORT INFORMATION
  Report Type: Other
  Country: DE (occurrence: DE)
  Receive Date: 20190625
  Receipt Date: 20190625
  Transmission Date: 20190711
  Serious: Yes (Other)
  Sender: FDA-Public Use
  Company Number: DE-LUPIN PHARMACEUTICALS INC.-2019-03708

PATIENT
  Age: 38 Year
  Sex: Female

DRUGS (3)
  1. LAMOTRIGINE. [Suspect]
     Active Substance: LAMOTRIGINE
     Indication: EPILEPSY
     Dosage: 300 MILLIGRAM, QD, (BIS 100)
     Route: 048
     Dates: end: 20180805
  2. FOLSAEURE [Concomitant]
     Active Substance: FOLIC ACID
     Indication: PROPHYLAXIS OF NEURAL TUBE DEFECT
     Dosage: 5 MILLIGRAM, QD
     Route: 048
     Dates: end: 20180423
  3. L-THYROXINE [LEVOTHYROXINE SODIUM] [Concomitant]
     Active Substance: LEVOTHYROXINE SODIUM
     Indication: HYPOTHYROIDISM
     Dosage: 10000 MICROGRAM, QD
     Route: 048
     Dates: end: 20180805

REACTIONS (4)
  - Congenital uterine anomaly [Unknown]
  - Foetal growth restriction [Recovered/Resolved]
  - Placental disorder [Recovered/Resolved]
  - Exposure during pregnancy [Unknown]
